FAERS Safety Report 18992281 (Version 1)
Quarter: 2021Q1

REPORT INFORMATION
  Report Type: Spontaneous
  Country: CA (occurrence: CA)
  Receive Date: 20210310
  Receipt Date: 20210310
  Transmission Date: 20210420
  Serious: Yes (Hospitalization)
  Sender: FDA-Public Use
  Company Number: CA-PFIZER INC-2021243948

PATIENT
  Sex: Female

DRUGS (4)
  1. AMLODIPINE BESILATE [Suspect]
     Active Substance: AMLODIPINE BESYLATE
     Route: 065
  2. ASPIRIN [ACETYLSALICYLIC ACID] [Concomitant]
     Active Substance: ASPIRIN
  3. RAMIPRIL. [Concomitant]
     Active Substance: RAMIPRIL
  4. APO?HYDROXYZINE [Suspect]
     Active Substance: HYDROXYZINE HYDROCHLORIDE
     Route: 065

REACTIONS (6)
  - Dizziness [Recovering/Resolving]
  - Nocturia [Recovering/Resolving]
  - Peripheral swelling [Recovering/Resolving]
  - Wound secretion [Recovering/Resolving]
  - Skin tightness [Recovering/Resolving]
  - Gait disturbance [Recovering/Resolving]
